FAERS Safety Report 6697257-3 (Version None)
Quarter: 2010Q2

REPORT INFORMATION
  Report Type: 
  Country: None (occurrence: None)
  Receive Date: 20100426
  Receipt Date: 20100414
  Transmission Date: 20101027
  Serious: Yes (Hospitalization, Other)
  Sender: FDA-Public Use
  Company Number: US-PFIZER INC-2010046603

PATIENT
  Sex: Female
  Weight: 59.184 kg

DRUGS (2)
  1. PREGABALIN [Suspect]
     Indication: PROCEDURAL PAIN
     Dosage: 75 MG, 2X/DAY
     Route: 048
     Dates: start: 20100406, end: 20100410
  2. PERCOCET [Concomitant]
     Dosage: OXYCODONE 5MG / PARACETAMOL 325MG PRN
     Route: 048
     Dates: start: 20100408, end: 20100411

REACTIONS (3)
  - NAUSEA [None]
  - POSTOPERATIVE ILEUS [None]
  - VOMITING [None]
